FAERS Safety Report 9823238 (Version 1)
Quarter: 2014Q1

REPORT INFORMATION
  Report Type: Other
  Country: DK (occurrence: US)
  Receive Date: 20140116
  Receipt Date: 20140116
  Transmission Date: 20141002
  Serious: Yes (Death)
  Sender: FDA-Public Use
  Company Number: US-FRI-1000052883

PATIENT
  Sex: Female

DRUGS (6)
  1. CITALOPRAM [Suspect]
  2. GLIMEPIRIDE [Suspect]
  3. WARFARIN [Suspect]
  4. KCL [Suspect]
  5. ATENOLOL [Suspect]
  6. DIAZEPAM [Suspect]

REACTIONS (1)
  - Toxicity to various agents [Fatal]
